FAERS Safety Report 9147245 (Version 1)
Quarter: 2013Q1

REPORT INFORMATION
  Report Type: Spontaneous
  Country: GB (occurrence: GB)
  Receive Date: 20130307
  Receipt Date: 20130307
  Transmission Date: 20140127
  Serious: Yes (Other)
  Sender: FDA-Public Use
  Company Number: GB-PFIZER INC-2013074232

PATIENT
  Age: 36 Year
  Sex: Male
  Weight: 95.8 kg

DRUGS (19)
  1. CLINDAMYCIN HCL [Suspect]
     Dosage: UNK
     Dates: start: 20130129
  2. LYMECYCLINE [Concomitant]
     Dosage: UNK
     Dates: start: 20121112, end: 20121210
  3. NIQUITIN [Concomitant]
     Dosage: UNK
     Dates: start: 20121120, end: 20121127
  4. NIQUITIN [Concomitant]
     Dosage: UNK
     Dates: start: 20121204, end: 20121211
  5. KALMS [Concomitant]
     Dosage: UNK
     Dates: start: 20121129, end: 20121130
  6. PARACETAMOL [Concomitant]
     Dosage: UNK
     Dates: start: 20121129, end: 20121201
  7. PARACETAMOL [Concomitant]
     Dosage: UNK
     Dates: start: 20121228, end: 20121230
  8. PARACETAMOL [Concomitant]
     Dosage: UNK
     Dates: start: 20130104, end: 20130106
  9. PARACETAMOL [Concomitant]
     Dosage: UNK
     Dates: start: 20130207, end: 20130209
  10. NICOTINELL [Concomitant]
     Dosage: UNK
     Dates: start: 20121204, end: 20121209
  11. NICOTINELL [Concomitant]
     Dosage: UNK
     Dates: start: 20121211, end: 20121214
  12. IBUPROFEN [Concomitant]
     Dosage: UNK
     Dates: start: 20121214, end: 20121218
  13. IBUPROFEN [Concomitant]
     Dosage: UNK
     Dates: start: 20121225, end: 20121229
  14. AMITRIPTYLINE HYDROCHLORIDE [Concomitant]
     Dosage: UNK
     Dates: start: 20121228, end: 20130104
  15. NAPROXEN [Concomitant]
     Dosage: UNK
     Dates: start: 20121228, end: 20130111
  16. KARVOL [Concomitant]
     Dosage: UNK
     Dates: start: 20130104, end: 20130106
  17. FLUCLOXACILLIN [Concomitant]
     Dosage: UNK
     Dates: start: 20130107, end: 20130121
  18. AMOXICILLIN [Concomitant]
     Dosage: UNK
     Dates: start: 20130208, end: 20130208
  19. CHLORPHENAMINE [Concomitant]
     Dosage: UNK
     Dates: start: 20130208, end: 20130215

REACTIONS (2)
  - Rash macular [Recovered/Resolved]
  - Body temperature increased [Unknown]
